FAERS Safety Report 5532928-3 (Version None)
Quarter: 2007Q4

REPORT INFORMATION
  Report Type: 
  Country: None (occurrence: None)
  Receive Date: 20071204
  Receipt Date: 20071129
  Transmission Date: 20080405
  Serious: Yes (Hospitalization)
  Sender: FDA-Public Use
  Company Number: FR-WYE-H01495207

PATIENT
  Sex: Male

DRUGS (8)
  1. CORDARONE [Suspect]
     Route: 048
     Dates: end: 20070901
  2. LASIX [Suspect]
     Route: 048
     Dates: end: 20070831
  3. BRONCHOKOD [Concomitant]
     Dosage: DOSE AND FREQUENCY NOT SPECIFIED
     Route: 048
  4. ISOPTIN [Suspect]
     Route: 048
     Dates: end: 20070831
  5. ISOPTIN [Suspect]
     Dosage: DOSE AND FREQUENCY NOT SPECIFIED
     Route: 048
     Dates: start: 20070101
  6. SERETIDE [Concomitant]
     Dosage: DOSE AND FREQUENCY NOT SPECIFIED
     Route: 055
  7. IKOREL [Suspect]
     Route: 048
     Dates: end: 20070831
  8. NITRODERM [Suspect]
     Route: 062
     Dates: end: 20070831

REACTIONS (7)
  - DEHYDRATION [None]
  - HYPERTHYROIDISM [None]
  - HYPONATRAEMIA [None]
  - HYPOTENSION [None]
  - LOSS OF CONSCIOUSNESS [None]
  - MALAISE [None]
  - RENAL FAILURE [None]
